FAERS Safety Report 14418838 (Version 1)
Quarter: 2018Q1

REPORT INFORMATION
  Report Type: Spontaneous
  Country: US (occurrence: US)
  Receive Date: 20180122
  Receipt Date: 20180122
  Transmission Date: 20180509
  Serious: No
  Sender: FDA-Public Use
  Company Number: US-TEVA-767448USA

PATIENT
  Age: 75 Year
  Weight: 77.18 kg

DRUGS (1)
  1. METFORMIN HYDROCHLORIDE, 500 MG [Suspect]
     Active Substance: METFORMIN HYDROCHLORIDE

REACTIONS (4)
  - Medication residue present [Unknown]
  - Product solubility abnormal [Unknown]
  - Blood glucose increased [Unknown]
  - Drug ineffective [Unknown]
